FAERS Safety Report 11923278 (Version 1)
Quarter: 2016Q1

REPORT INFORMATION
  Report Type: Spontaneous
  Country: IT (occurrence: IT)
  Receive Date: 20160118
  Receipt Date: 20160118
  Transmission Date: 20160526
  Serious: Yes (Other)
  Sender: FDA-Public Use
  Company Number: IT-HOSPIRA-3134373

PATIENT
  Age: 63 Year
  Sex: Female

DRUGS (2)
  1. AVASTIN [Concomitant]
     Active Substance: BEVACIZUMAB
     Indication: BREAST CANCER
     Route: 042
     Dates: start: 20151009, end: 20160104
  2. ANZATAX                            /00285201/ [Suspect]
     Active Substance: CLONAZEPAM
     Indication: BREAST CANCER
     Route: 042
     Dates: start: 20151009, end: 20160104

REACTIONS (5)
  - Asthenia [Recovered/Resolved]
  - Cold sweat [Recovered/Resolved]
  - Malaise [Unknown]
  - Hypotension [Recovered/Resolved]
  - Pallor [Recovered/Resolved]

NARRATIVE: CASE EVENT DATE: 20160104
